FAERS Safety Report 9378090 (Version 2)
Quarter: 2013Q3

REPORT INFORMATION
  Report Type: Spontaneous
  Country: BR (occurrence: BR)
  Receive Date: 20130701
  Receipt Date: 20130719
  Transmission Date: 20140515
  Serious: Yes (Hospitalization, Other)
  Sender: FDA-Public Use
  Company Number: BR-GLAXOSMITHKLINE-A1029122A

PATIENT
  Sex: Male

DRUGS (2)
  1. PROPAFENONE [Suspect]
     Indication: ARRHYTHMIA
     Dosage: 150MG TWICE PER DAY
     Route: 048
     Dates: start: 2011
  2. SIMVASTATIN [Concomitant]
     Indication: BLOOD CHOLESTEROL
     Dosage: 4MG PER DAY
     Route: 048

REACTIONS (4)
  - Cardiac pacemaker replacement [Recovered/Resolved]
  - Dyspnoea [Recovered/Resolved]
  - Feeling cold [Recovered/Resolved]
  - Feeling abnormal [Recovered/Resolved]
